FAERS Safety Report 15989379 (Version 1)
Quarter: 2019Q1

REPORT INFORMATION
  Report Type: Spontaneous
  Country: US (occurrence: US)
  Receive Date: 20190125
  Receipt Date: 20190125
  Transmission Date: 20190418
  Serious: Yes (Hospitalization)
  Sender: FDA-Public Use
  Company Number: None

PATIENT
  Age: 70 Year
  Sex: Male

DRUGS (1)
  1. ZOLPIDEM [Suspect]
     Active Substance: ZOLPIDEM\ZOLPIDEM TARTRATE
     Indication: INSOMNIA
     Route: 048
     Dates: start: 20181130, end: 20190118

REACTIONS (5)
  - Fatigue [None]
  - Mental status changes [None]
  - Hallucination, visual [None]
  - Asthenia [None]
  - Confusional state [None]

NARRATIVE: CASE EVENT DATE: 20190118
